FAERS Safety Report 17901016 (Version 2)
Quarter: 2022Q1

REPORT INFORMATION
  Report Type: Spontaneous
  Country: HK (occurrence: HK)
  Receive Date: 20200616
  Receipt Date: 20220331
  Transmission Date: 20220423
  Serious: Yes (Life-Threatening, Hospitalization, Other)
  Sender: FDA-Public Use
  Company Number: HK-SUN PHARMACEUTICAL INDUSTRIES LTD-2020R1-249832

PATIENT
  Age: 6 Month
  Sex: Male

DRUGS (3)
  1. FLECAINIDE [Suspect]
     Active Substance: FLECAINIDE
     Indication: Atrial tachycardia
     Dosage: UNK
     Route: 065
  2. AMIODARONE [Concomitant]
     Active Substance: AMIODARONE
     Indication: Atrial tachycardia
     Dosage: UNK
     Route: 065
  3. NADOLOL [Concomitant]
     Active Substance: NADOLOL
     Indication: Atrial tachycardia
     Dosage: UNK
     Route: 048

REACTIONS (9)
  - Toxicity to various agents [Unknown]
  - Bradycardia [Unknown]
  - Electrocardiogram QRS complex prolonged [Unknown]
  - Gastroenteritis viral [Unknown]
  - Poor feeding infant [Unknown]
  - Hypotension [Unknown]
  - Metabolic acidosis [Unknown]
  - Atrioventricular dissociation [Unknown]
  - Drug level increased [Unknown]
